FAERS Safety Report 8870140 (Version 1)
Quarter: 2012Q4

REPORT INFORMATION
  Report Type: 
  Country: FR (occurrence: FR)
  Receive Date: 20121028
  Receipt Date: 20121028
  Transmission Date: 20130627
  Serious: Yes (Hospitalization)
  Sender: FDA-Public Use
  Company Number: FR-MYLANLABS-2012S1021645

PATIENT
  Age: 50 Year
  Sex: Female

DRUGS (4)
  1. BACLOFEN [Suspect]
     Indication: MUSCLE SPASTICITY
     Dosage: 60 mg/day
     Route: 065
     Dates: start: 2004
  2. BACLOFEN [Suspect]
     Indication: OVERDOSE
     Dosage: 60 mg/day
     Route: 065
     Dates: start: 2004
  3. BACLOFEN [Suspect]
     Indication: MUSCLE SPASTICITY
     Dosage: 1800mg
     Route: 065
  4. BACLOFEN [Suspect]
     Indication: OVERDOSE
     Dosage: 1800mg
     Route: 065

REACTIONS (6)
  - Overdose [Recovering/Resolving]
  - Coma [Recovering/Resolving]
  - Bradypnoea [Unknown]
  - Hypotension [Unknown]
  - Bradycardia [Unknown]
  - Oxygen saturation abnormal [Unknown]
